FAERS Safety Report 22142226 (Version 1)
Quarter: 2023Q1

REPORT INFORMATION
  Report Type: Spontaneous
  Country: FR (occurrence: FR)
  Receive Date: 20230327
  Receipt Date: 20230327
  Transmission Date: 20230417
  Serious: Yes (Hospitalization)
  Sender: FDA-Public Use
  Company Number: None

PATIENT
  Age: 62 Year
  Sex: Female

DRUGS (7)
  1. RITUXIMAB [Suspect]
     Active Substance: RITUXIMAB
     Indication: Chronic lymphocytic leukaemia
     Dosage: 500 MG/M2, CYCLIC (1 INFUSION ON D1 EVERY MONTH)
     Route: 042
     Dates: start: 20220817
  2. BENDAMUSTINE [Suspect]
     Active Substance: BENDAMUSTINE
     Indication: Chronic lymphocytic leukaemia
     Dosage: 90 MG/M2, CYCLIC (1 INFUSION ON D1 AND D2 EVERY MONTH)
     Route: 042
     Dates: start: 20220817
  3. ONDANSETRON [Concomitant]
     Active Substance: ONDANSETRON
  4. LEVOTHYROXINE [Concomitant]
     Active Substance: LEVOTHYROXINE
  5. FOLIC ACID [Concomitant]
     Active Substance: FOLIC ACID
  6. EMEND [Concomitant]
     Active Substance: APREPITANT
  7. VALACYCLOVIR HYDROCHLORIDE [Concomitant]
     Active Substance: VALACYCLOVIR HYDROCHLORIDE

REACTIONS (2)
  - Hypersensitivity [Recovered/Resolved]
  - Anaemia [Recovered/Resolved]

NARRATIVE: CASE EVENT DATE: 20220801
